FAERS Safety Report 6082362-5 (Version None)
Quarter: 2009Q1

REPORT INFORMATION
  Report Type: 
  Country: None (occurrence: None)
  Receive Date: 20090130
  Receipt Date: 20080417
  Transmission Date: 20090719
  Serious: Yes (Hospitalization)
  Sender: FDA-Public Use
  Company Number: 8031148

PATIENT
  Sex: Female

DRUGS (7)
  1. KEPPRA [Suspect]
     Indication: COMPLEX PARTIAL SEIZURES
  2. LAMICTAL [Suspect]
     Indication: COMPLEX PARTIAL SEIZURES
     Dosage: 300 MG 2/D PO
     Route: 048
     Dates: start: 20060101
  3. SEASONALE [Suspect]
     Indication: CONTRACEPTION
  4. QUANESE [Suspect]
     Indication: CONTRACEPTION
  5. DILANTIN [Suspect]
  6. ZONEGRAN [Suspect]
  7. FRUSEMIDE [Concomitant]

REACTIONS (4)
  - DIZZINESS [None]
  - GRAND MAL CONVULSION [None]
  - HEADACHE [None]
  - STATUS EPILEPTICUS [None]
